FAERS Safety Report 20979141 (Version 4)
Quarter: 2024Q3

REPORT INFORMATION
  Report Type: Report from Study
  Country: US (occurrence: US)
  Receive Date: 20220619
  Receipt Date: 20240712
  Transmission Date: 20241017
  Serious: No
  Sender: ACADIA PHARMACEUTICALS
  Company Number: US-ACADIA PHARMACEUTICALS INC.-ACA-2022-PIM-001879

PATIENT
  Age: 70 Year
  Sex: Female

DRUGS (18)
  1. NUPLAZID [Suspect]
     Active Substance: PIMAVANSERIN TARTRATE
     Indication: Parkinson^s disease psychosis
     Dosage: 34 MILLIGRAM, QD
     Route: 048
     Dates: start: 20220520, end: 20220522
  2. NUPLAZID [Suspect]
     Active Substance: PIMAVANSERIN TARTRATE
     Indication: Hallucination
     Dosage: 34 MILLIGRAM, QD
     Route: 048
     Dates: end: 20240430
  3. NUPLAZID [Suspect]
     Active Substance: PIMAVANSERIN TARTRATE
     Indication: Delusion
  4. NUPLAZID [Suspect]
     Active Substance: PIMAVANSERIN TARTRATE
     Indication: Psychotic disorder
  5. SINEMET [Concomitant]
     Active Substance: CARBIDOPA\LEVODOPA
  6. EXELON [Concomitant]
     Active Substance: RIVASTIGMINE TARTRATE
  7. ROPINIROLE [Concomitant]
     Active Substance: ROPINIROLE
  8. SEROQUEL [Concomitant]
     Active Substance: QUETIAPINE FUMARATE
  9. SINEMET CR [Concomitant]
     Active Substance: CARBIDOPA\LEVODOPA
  10. TERCONAZOLE [Concomitant]
     Active Substance: TERCONAZOLE
  11. CARBIDOPA LEVODOPA [Concomitant]
     Active Substance: CARBIDOPA\LEVODOPA
     Dosage: ER
  12. FLUOROURACIL [Concomitant]
     Active Substance: FLUOROURACIL
  13. RIVASTIGMINE [Concomitant]
     Active Substance: RIVASTIGMINE
  14. MYRBETRIQ [Concomitant]
     Active Substance: MIRABEGRON
  15. THERA D [Concomitant]
  16. QUETIAPINE FUMARATE [Concomitant]
     Active Substance: QUETIAPINE FUMARATE
  17. OCUVITE [ASCORBIC ACID;RETINOL;TOCOPHEROL] [Concomitant]
  18. DOXYCYCLINE HYCLATE [Concomitant]
     Active Substance: DOXYCYCLINE HYCLATE

REACTIONS (5)
  - Ill-defined disorder [Unknown]
  - Localised infection [Unknown]
  - Oedema [Recovered/Resolved]
  - Freezing phenomenon [Recovered/Resolved]
  - Confusional state [Recovered/Resolved]

NARRATIVE: CASE EVENT DATE: 20220521
